FAERS Safety Report 22266525 (Version 2)
Quarter: 2023Q2

REPORT INFORMATION
  Report Type: Spontaneous
  Country: US (occurrence: US)
  Receive Date: 20230428
  Receipt Date: 20230512
  Transmission Date: 20230721
  Serious: Yes (Hospitalization)
  Sender: FDA-Public Use
  Company Number: US-TEVA-2023-US-2879258

PATIENT
  Age: 64 Year
  Sex: Female

DRUGS (13)
  1. ROCURONIUM [Suspect]
     Active Substance: ROCURONIUM BROMIDE
     Indication: General anaesthesia
     Dosage: 1 MG/KG
     Route: 065
  2. ETOMIDATE [Suspect]
     Active Substance: ETOMIDATE
     Indication: General anaesthesia
     Dosage: 0.3 MG/KG
     Route: 065
  3. KETAMINE [Suspect]
     Active Substance: KETAMINE
     Indication: General anaesthesia
     Dosage: INFUSION; 4UG/KG/MINUTE
     Route: 065
  4. LEVOCETIRIZINE [Concomitant]
     Active Substance: LEVOCETIRIZINE
     Indication: Antiallergic therapy
     Dosage: 5 MG
     Route: 065
  5. MONTELUKAST [Concomitant]
     Active Substance: MONTELUKAST SODIUM
     Indication: Premedication
     Dosage: 20 MG
     Route: 065
  6. FAMOTIDINE [Concomitant]
     Active Substance: FAMOTIDINE
     Indication: Antiallergic therapy
     Dosage: 40 MG
     Route: 065
  7. CETIRIZINE [Concomitant]
     Active Substance: CETIRIZINE HYDROCHLORIDE
     Indication: Antiallergic therapy
     Dosage: 20 MG
     Route: 065
  8. DEXMEDETOMIDINE [Concomitant]
     Active Substance: DEXMEDETOMIDINE
     Indication: Pain
     Dosage: INFUSION, 1.2 UG/KG
     Route: 065
  9. DEXMEDETOMIDINE [Concomitant]
     Active Substance: DEXMEDETOMIDINE
     Dosage: 0.6UG/KG/HOUR
  10. METHADONE [Concomitant]
     Active Substance: METHADONE HYDROCHLORIDE
     Indication: Pain
     Dosage: GIVEN IN 2 BOLUSES
     Route: 065
  11. CROMOLYN [Concomitant]
     Active Substance: CROMOLYN
     Indication: Preoperative care
     Dosage: 200 MILLIGRAM DAILY; ONCE A DAY
     Route: 065
  12. KETOTIFEN [Concomitant]
     Active Substance: KETOTIFEN
     Indication: Preoperative care
     Dosage: 0.5 MG
     Route: 065
  13. KETOTIFEN [Concomitant]
     Active Substance: KETOTIFEN
     Dosage: 1 MG
     Route: 065

REACTIONS (1)
  - Mast cell activation syndrome [Recovered/Resolved]
